FAERS Safety Report 9404384 (Version 2)
Quarter: 2013Q3

REPORT INFORMATION
  Report Type: Report from Study
  Country: CA (occurrence: CA)
  Receive Date: 20130717
  Receipt Date: 20130828
  Transmission Date: 20140515
  Serious: Yes (Hospitalization, Other)
  Sender: FDA-Public Use
  Company Number: CA-JNJFOC-20130704378

PATIENT
  Age: 72 Year
  Sex: Male
  Weight: 98 kg

DRUGS (11)
  1. REMICADE [Suspect]
     Indication: RHEUMATOID ARTHRITIS
     Route: 042
     Dates: start: 20001219
  2. METHOTREXATE [Concomitant]
     Route: 048
  3. FOLIC ACID [Concomitant]
     Dosage: FREQUENCY: 5/7 DAYS
     Route: 048
  4. COUMADIN [Concomitant]
     Dosage: AS PER INTERNATIONAL NORMALIZED RATIO (INR)
     Route: 048
  5. FUROSEMIDE [Concomitant]
     Route: 048
  6. LIPITOR [Concomitant]
     Route: 048
  7. PLAQUENIL [Concomitant]
     Route: 048
  8. RABEPRAZOLE [Concomitant]
     Route: 048
  9. MICARDIS [Concomitant]
     Route: 048
  10. ALLOPURINOL [Concomitant]
     Route: 048
  11. SYMBICORT [Concomitant]
     Route: 065

REACTIONS (2)
  - Nephrolithiasis [Not Recovered/Not Resolved]
  - Frequent bowel movements [Unknown]
